FAERS Safety Report 6807119-6 (Version None)
Quarter: 2010Q2

REPORT INFORMATION
  Report Type: 
  Country: None (occurrence: None)
  Receive Date: 20100629
  Receipt Date: 20081001
  Transmission Date: 20101027
  Serious: Yes (Other)
  Sender: FDA-Public Use
  Company Number: US-PFIZER INC-2008048716

PATIENT
  Age: 85 Year
  Sex: Male
  Weight: 86.6 kg

DRUGS (14)
  1. ZYVOX [Suspect]
     Indication: STAPHYLOCOCCAL INFECTION
     Route: 048
     Dates: start: 20080523, end: 20080605
  2. CYMBALTA [Suspect]
     Indication: DEPRESSION
     Dates: start: 20080525, end: 20080603
  3. MAXIPIME [Concomitant]
  4. COLACE [Concomitant]
  5. NICOTINE [Concomitant]
  6. BENADRYL [Concomitant]
  7. ZOFRAN [Concomitant]
  8. PROTONIX [Concomitant]
  9. DILANTIN [Concomitant]
  10. FERROUS GLUCONATE [Concomitant]
  11. COREG [Concomitant]
  12. ALBUTEROL [Concomitant]
  13. ATROVENT [Concomitant]
  14. CASODEX [Concomitant]

REACTIONS (4)
  - AGITATION [None]
  - CONFUSIONAL STATE [None]
  - SEROTONIN SYNDROME [None]
  - SOMNOLENCE [None]
